FAERS Safety Report 8280857-7 (Version None)
Quarter: 2012Q2

REPORT INFORMATION
  Report Type: 
  Country: None (occurrence: None)
  Receive Date: 20120412
  Receipt Date: 20120404
  Transmission Date: 20120825
  Serious: Yes (Hospitalization, Other)
  Sender: FDA-Public Use
  Company Number: US-ABBOTT-12P-163-0922164-00

PATIENT
  Sex: Male
  Weight: 87.168 kg

DRUGS (12)
  1. PLAVIX [Concomitant]
     Indication: PRODUCT USED FOR UNKNOWN INDICATION
     Dosage: DAILY
  2. FLONASE [Concomitant]
     Indication: PRODUCT USED FOR UNKNOWN INDICATION
     Dosage: ONE SQUIRT EACH NOSTRIL TWICE A DAY
     Route: 045
  3. PREDNISONE TAB [Concomitant]
     Indication: PRODUCT USED FOR UNKNOWN INDICATION
     Dosage: 20 MG DAILY
  4. ASPIRIN [Concomitant]
     Indication: PRODUCT USED FOR UNKNOWN INDICATION
     Dosage: 81 MG DAILY
  5. PRILOSEC [Concomitant]
     Indication: PRODUCT USED FOR UNKNOWN INDICATION
     Dosage: 40 MG DAILY
  6. ALLERGY [Concomitant]
     Indication: PRODUCT USED FOR UNKNOWN INDICATION
     Dosage: SHOTS
  7. IMDUR [Concomitant]
     Indication: PRODUCT USED FOR UNKNOWN INDICATION
     Dosage: DAILY
  8. AMBIEN [Concomitant]
     Indication: INSOMNIA
     Dosage: AT NIGHT AS NEEDED
  9. HUMIRA [Suspect]
     Dates: start: 20030101, end: 20050101
  10. VALIUM [Concomitant]
     Indication: VERTIGO
  11. HUMIRA [Suspect]
     Indication: RHEUMATOID ARTHRITIS
     Dates: start: 20020101, end: 20030101
  12. LISINOPRIL [Concomitant]
     Indication: PRODUCT USED FOR UNKNOWN INDICATION
     Dosage: 5 MG DAILY

REACTIONS (9)
  - CORONARY ARTERY OCCLUSION [None]
  - ABDOMINAL HERNIA [None]
  - STAPHYLOCOCCAL INFECTION [None]
  - BUNION [None]
  - CHEST PAIN [None]
  - OEDEMA PERIPHERAL [None]
  - PURULENT DISCHARGE [None]
  - ABDOMINAL PAIN [None]
  - PAIN IN EXTREMITY [None]
